FAERS Safety Report 5955664-8 (Version None)
Quarter: 2008Q4

REPORT INFORMATION
  Report Type: 
  Country: None (occurrence: None)
  Receive Date: 20081117
  Receipt Date: 20081107
  Transmission Date: 20090506
  Serious: Yes (Other)
  Sender: FDA-Public Use
  Company Number: GB-PFIZER INC-2008094518

PATIENT
  Age: 67 Year
  Sex: Male
  Weight: 60 kg

DRUGS (3)
  1. CHAMPIX [Suspect]
     Indication: SMOKING CESSATION THERAPY
     Route: 048
     Dates: start: 20080301
  2. AMLODIPINE [Concomitant]
     Route: 048
  3. LANSOPRAZOLE [Concomitant]
     Route: 048

REACTIONS (7)
  - ALANINE AMINOTRANSFERASE INCREASED [None]
  - ANOREXIA [None]
  - BLOOD CREATINE PHOSPHOKINASE ABNORMAL [None]
  - MALAISE [None]
  - MUSCULAR WEAKNESS [None]
  - MYALGIA [None]
  - MYOSITIS [None]
